FAERS Safety Report 6774823-8 (Version None)
Quarter: 2010Q2

REPORT INFORMATION
  Report Type: 
  Country: None (occurrence: None)
  Receive Date: 20100615
  Receipt Date: 20100615
  Transmission Date: 20101027
  Serious: Yes (Other)
  Sender: FDA-Public Use
  Company Number: None

PATIENT
  Age: 62 Year
  Sex: Male
  Weight: 133.8111 kg

DRUGS (1)
  1. TRILIPIX [Suspect]
     Indication: BLOOD TRIGLYCERIDES INCREASED
     Dosage: 45 MG CAPSULE ONE DAILY
     Dates: start: 20100305, end: 20100608

REACTIONS (4)
  - BACK PAIN [None]
  - CHEST PAIN [None]
  - COLITIS [None]
  - FATIGUE [None]
